FAERS Safety Report 5821497-6 (Version None)
Quarter: 2008Q3

REPORT INFORMATION
  Report Type: 
  Country: None (occurrence: None)
  Receive Date: 20080724
  Receipt Date: 20080717
  Transmission Date: 20090109
  Serious: Yes (Life-Threatening, Hospitalization)
  Sender: FDA-Public Use
  Company Number: ES-ASTRAZENECA-2008AC01807

PATIENT
  Age: 52 Year
  Sex: Female

DRUGS (3)
  1. PROPOFOL [Suspect]
     Indication: ANAESTHESIA
     Route: 042
     Dates: start: 20080602, end: 20080602
  2. MEPIVACAINA [Interacting]
     Indication: ANAESTHESIA
     Route: 053
     Dates: start: 20080602, end: 20080602
  3. NAROPIN POLYAMP [Interacting]
     Indication: ANAESTHESIA
     Route: 053
     Dates: start: 20080602, end: 20080602

REACTIONS (3)
  - ARTERIOSPASM CORONARY [None]
  - DRUG INTERACTION [None]
  - VENTRICULAR DYSFUNCTION [None]
